FAERS Safety Report 8996588 (Version 3)
Quarter: 2013Q2

REPORT INFORMATION
  Report Type: Spontaneous
  Country: US (occurrence: US)
  Receive Date: 20130104
  Receipt Date: 20130405
  Transmission Date: 20140414
  Serious: Yes (Other)
  Sender: FDA-Public Use
  Company Number: US-BAYER-2013-000930

PATIENT
  Age: 35 Year
  Sex: Female
  Weight: 87.98 kg

DRUGS (4)
  1. MIRENA [Suspect]
     Indication: CONTRACEPTION
     Dosage: 20 MCG/24HR, CONT
     Route: 015
     Dates: start: 20121113, end: 20121130
  2. MIRENA [Suspect]
     Indication: MENORRHAGIA
     Dosage: 20 MCG/24HR, CONT
     Route: 015
     Dates: start: 20130226
  3. MIRENA [Suspect]
     Indication: DYSMENORRHOEA
  4. MISOPROSTOL [Concomitant]

REACTIONS (6)
  - Device dislocation [None]
  - Device dislocation [None]
  - Device dislocation [None]
  - Infection [None]
  - Uterine tenderness [None]
  - Vaginal discharge [None]
